FAERS Safety Report 7700344-1 (Version None)
Quarter: 2011Q3

REPORT INFORMATION
  Report Type: 
  Country: None (occurrence: None)
  Receive Date: 20110822
  Receipt Date: 20110816
  Transmission Date: 20111222
  Serious: Yes (Hospitalization, Other)
  Sender: FDA-Public Use
  Company Number: PHHY2011BE73396

PATIENT
  Age: 2 Year
  Sex: Male

DRUGS (1)
  1. METHERGINE [Suspect]
     Route: 048

REACTIONS (2)
  - WRONG DRUG ADMINISTERED [None]
  - VASOCONSTRICTION [None]
